FAERS Safety Report 9716856 (Version 2)
Quarter: 2014Q1

REPORT INFORMATION
  Report Type: Spontaneous
  Country: DE (occurrence: DE)
  Receive Date: 20131127
  Receipt Date: 20140325
  Transmission Date: 20141002
  Serious: Yes (Congenital Anomaly, Other)
  Sender: FDA-Public Use
  Company Number: DE-MALLINCKRODT-T201304970

PATIENT
  Sex: Male
  Weight: 3.5 kg

DRUGS (15)
  1. EXALGO [Suspect]
     Indication: PSORIATIC ARTHROPATHY
     Dosage: 8 MG, 1 IN 1 DAY
     Route: 064
     Dates: start: 20091126, end: 20100115
  2. REMICADE [Suspect]
     Indication: PSORIATIC ARTHROPATHY
     Dosage: UNK
     Route: 064
     Dates: start: 20090624
  3. REMICADE [Suspect]
     Dosage: UNK
     Route: 064
     Dates: start: 20090717
  4. REMICADE [Suspect]
     Dosage: UNK
     Route: 064
     Dates: start: 20091221
  5. REMICADE [Suspect]
     Dosage: UNK
     Route: 064
     Dates: start: 20100107
  6. REMICADE [Suspect]
     Dosage: UNK
     Route: 064
     Dates: start: 20100209, end: 20100209
  7. DICLOFENAC [Suspect]
     Indication: PSORIATIC ARTHROPATHY
     Dosage: 75 MG, 2 IN 1 DAY
     Route: 064
     Dates: start: 20091126, end: 20100105
  8. DOLORMIN /00109201/ [Suspect]
     Indication: MIGRAINE
     Dosage: 2 TABLETS ONLY
     Route: 064
     Dates: start: 200907, end: 200908
  9. PREDNISOLONE [Suspect]
     Indication: PSORIATIC ARTHROPATHY
     Dosage: UNK
     Route: 065
  10. PANTOZOL /01263204/ [Suspect]
     Indication: GASTRITIS PROPHYLAXIS
     Dosage: 22.1- 38.5 GESTATIONAL WEEK
     Route: 064
     Dates: start: 20091126, end: 20100322
  11. HYDROCORTISONE [Suspect]
     Indication: PSORIASIS
     Route: 065
  12. BIFITERAL [Suspect]
     Indication: CONSTIPATION
     Dosage: UNK
     Route: 064
     Dates: start: 20091123, end: 20091130
  13. PARACETAMOL [Suspect]
     Indication: PSORIATIC ARTHROPATHY
     Route: 065
  14. DIPIDOLOR [Suspect]
     Indication: PSORIATIC ARTHROPATHY
     Dosage: 45 MG, 1 IN 1 DAY
     Route: 064
  15. FOLSAURE [Concomitant]
     Indication: PRODUCT USED FOR UNKNOWN INDICATION
     Route: 064

REACTIONS (6)
  - Foetal exposure during pregnancy [Unknown]
  - Developmental hip dysplasia [Unknown]
  - Haemangioma [Unknown]
  - Ureteric stenosis [Unknown]
  - Hydrocele [Recovered/Resolved]
  - Temperature regulation disorder [Recovered/Resolved]
